FAERS Safety Report 7461781-6 (Version None)
Quarter: 2011Q2

REPORT INFORMATION
  Report Type: 
  Country: None (occurrence: None)
  Receive Date: 20110506
  Receipt Date: 20100909
  Transmission Date: 20111010
  Serious: No
  Sender: FDA-Public Use
  Company Number: US-BAYER-201035799NA

PATIENT
  Sex: Female

DRUGS (1)
  1. YASMIN [Suspect]
     Indication: CONTRACEPTION
     Dosage: UNK

REACTIONS (8)
  - MUSCLE SPASMS [None]
  - WEIGHT INCREASED [None]
  - NAUSEA [None]
  - MIGRAINE [None]
  - HEADACHE [None]
  - VAGINAL HAEMORRHAGE [None]
  - IRRITABILITY [None]
  - FEELING ABNORMAL [None]
